FAERS Safety Report 4295680-8 (Version None)
Quarter: 2004Q1

REPORT INFORMATION
  Report Type: 
  Country: None (occurrence: None)
  Receive Date: 20040212
  Receipt Date: 20040130
  Transmission Date: 20041129
  Serious: Yes (Disabling)
  Sender: FDA-Public Use
  Company Number: HQWYE831522APR03

PATIENT
  Age: 31 Year
  Sex: Male

DRUGS (1)
  1. DIMETAPP [Suspect]
     Dosage: ORAL
     Route: 048
     Dates: start: 20010213, end: 20010216

REACTIONS (1)
  - HAEMORRHAGIC STROKE [None]
